APPROVED DRUG PRODUCT: ALFUZOSIN HYDROCHLORIDE
Active Ingredient: ALFUZOSIN HYDROCHLORIDE
Strength: 10MG
Dosage Form/Route: TABLET, EXTENDED RELEASE;ORAL
Application: A079060 | Product #001 | TE Code: AB
Applicant: AUROBINDO PHARMA LTD
Approved: Aug 30, 2012 | RLD: No | RS: No | Type: RX